FAERS Safety Report 21124727 (Version 6)
Quarter: 2023Q1

REPORT INFORMATION
  Report Type: Report from Study
  Country: CO (occurrence: CO)
  Receive Date: 20220725
  Receipt Date: 20230216
  Transmission Date: 20230417
  Serious: Yes (Hospitalization, Other)
  Sender: FDA-Public Use
  Company Number: CO-NOVARTISPH-NVSC2022CO166293

PATIENT
  Sex: Male

DRUGS (3)
  1. ELTROMBOPAG OLAMINE [Suspect]
     Active Substance: ELTROMBOPAG OLAMINE
     Indication: Aplastic anaemia
     Dosage: 100 MG, QD
     Route: 048
  2. ELTROMBOPAG OLAMINE [Suspect]
     Active Substance: ELTROMBOPAG OLAMINE
     Dosage: UNK, QD
     Route: 048
  3. ELTROMBOPAG OLAMINE [Suspect]
     Active Substance: ELTROMBOPAG OLAMINE
     Dosage: 3 DOSAGE FORM, QD (3 TABLETS OF 150MG)
     Route: 048

REACTIONS (13)
  - Leukaemia [Unknown]
  - COVID-19 [Unknown]
  - Hypersensitivity [Unknown]
  - General physical health deterioration [Unknown]
  - Food poisoning [Recovering/Resolving]
  - Diarrhoea [Recovering/Resolving]
  - Dehydration [Recovering/Resolving]
  - Weight decreased [Recovering/Resolving]
  - Aplastic anaemia [Unknown]
  - Platelet disorder [Unknown]
  - Asthenia [Unknown]
  - Product dose omission issue [Unknown]
  - Product supply issue [Unknown]
